FAERS Safety Report 22264119 (Version 3)
Quarter: 2023Q4

REPORT INFORMATION
  Report Type: Spontaneous
  Country: JP (occurrence: JP)
  Receive Date: 20230428
  Receipt Date: 20231006
  Transmission Date: 20240110
  Serious: Yes (Death, Other)
  Sender: FDA-Public Use
  Company Number: JP-BAYER-2023A058548

PATIENT
  Age: 54 Year
  Sex: Male
  Weight: 63.9 kg

DRUGS (2)
  1. IOPROMIDE [Suspect]
     Active Substance: IOPROMIDE
     Indication: Peripheral artery aneurysm
     Dosage: 84 ML, ONCE
     Route: 042
     Dates: start: 20230426, end: 20230426
  2. IOPROMIDE [Suspect]
     Active Substance: IOPROMIDE
     Indication: Computerised tomogram

REACTIONS (10)
  - Anaphylactic shock [Fatal]
  - Cardiogenic shock [Fatal]
  - Dyspnoea [Fatal]
  - Oropharyngeal discomfort [Not Recovered/Not Resolved]
  - Blood pressure decreased [None]
  - Loss of consciousness [None]
  - Ventricular fibrillation [None]
  - Contraindicated product administered [None]
  - Pruritus [None]
  - Pulse absent [None]

NARRATIVE: CASE EVENT DATE: 20230426
